FAERS Safety Report 4855204-0 (Version None)
Quarter: 2005Q4

REPORT INFORMATION
  Report Type: 
  Country: None (occurrence: None)
  Receive Date: 20051215
  Receipt Date: 20050829
  Transmission Date: 20060501
  Serious: Yes (Hospitalization)
  Sender: FDA-Public Use
  Company Number: US-MERCK-0508USA04600

PATIENT
  Age: 76 Year
  Sex: Female
  Weight: 136 kg

DRUGS (2)
  1. VIOXX [Suspect]
     Indication: ARTHRITIS
     Route: 048
     Dates: start: 19990101, end: 20040101
  2. ADVIL [Concomitant]
     Route: 065

REACTIONS (3)
  - ANGIOPATHY [None]
  - CARDIAC FAILURE CONGESTIVE [None]
  - THROMBOSIS [None]
